FAERS Safety Report 16399460 (Version 2)
Quarter: 2019Q4

REPORT INFORMATION
  Report Type: Spontaneous
  Country: US (occurrence: US)
  Receive Date: 20190606
  Receipt Date: 20191001
  Transmission Date: 20200122
  Serious: No
  Sender: FDA-Public Use
  Company Number: US-CELGENEUS-USA-20190510887

PATIENT
  Age: 76 Year
  Sex: Female
  Weight: 74.91 kg

DRUGS (13)
  1. CENTRUM [Concomitant]
     Active Substance: VITAMINS
     Indication: VITAMIN SUPPLEMENTATION
     Route: 065
  2. METFORMIN [Concomitant]
     Active Substance: METFORMIN HYDROCHLORIDE
     Indication: DIABETES MELLITUS
     Route: 065
  3. NADALOL [Concomitant]
     Indication: HYPERTENSION
     Route: 065
  4. FERROUS SULFATE. [Concomitant]
     Active Substance: FERROUS SULFATE
     Indication: VITAMIN SUPPLEMENTATION
     Route: 065
  5. LIDODERM [Concomitant]
     Active Substance: LIDOCAINE
     Indication: PAIN
     Route: 065
  6. CYCLOBENZAPRINE. [Concomitant]
     Active Substance: CYCLOBENZAPRINE
     Indication: PAIN
     Route: 065
  7. STOOL SOFTNER [Concomitant]
     Indication: CONSTIPATION
     Route: 065
  8. THALOMID [Suspect]
     Active Substance: THALIDOMIDE
     Indication: IRON DEFICIENCY ANAEMIA
     Dosage: 50 MILLIGRAM
     Route: 048
     Dates: start: 20180614
  9. THALOMID [Suspect]
     Active Substance: THALIDOMIDE
     Indication: MYELODYSPLASTIC SYNDROME
     Dosage: 50 MILLIGRAM
     Route: 048
     Dates: start: 201905
  10. OMEPRAZOLE. [Concomitant]
     Active Substance: OMEPRAZOLE
     Indication: GASTROOESOPHAGEAL REFLUX DISEASE
     Route: 065
  11. OXYCODONE [Concomitant]
     Active Substance: OXYCODONE
     Indication: PAIN
     Route: 065
  12. XIFAXAN [Concomitant]
     Active Substance: RIFAXIMIN
     Indication: DIARRHOEA
     Route: 065
  13. VITAMIN K [Concomitant]
     Active Substance: PHYTONADIONE
     Indication: VITAMIN SUPPLEMENTATION
     Route: 065

REACTIONS (3)
  - Insomnia [Recovered/Resolved]
  - Fatigue [Recovered/Resolved]
  - Feeling abnormal [Unknown]

NARRATIVE: CASE EVENT DATE: 20190823
